FAERS Safety Report 4673236-2 (Version None)
Quarter: 2005Q2

REPORT INFORMATION
  Report Type: 
  Country: None (occurrence: None)
  Receive Date: 20050525
  Receipt Date: 20050509
  Transmission Date: 20051028
  Serious: Yes (Other)
  Sender: FDA-Public Use
  Company Number: 200514524GDDC

PATIENT
  Age: 76 Year
  Sex: Female

DRUGS (2)
  1. RILUZOLE [Suspect]
     Indication: MOTOR NEURONE DISEASE
     Route: 048
     Dates: start: 20050309, end: 20050509
  2. XALATAN [Concomitant]
     Indication: GLAUCOMA
     Dosage: DOSE: UNK
     Route: 031
     Dates: start: 20030319

REACTIONS (2)
  - LYMPHOCYTE COUNT DECREASED [None]
  - NEUTROPENIA [None]
